FAERS Safety Report 7873710-1 (Version None)
Quarter: 2011Q4

REPORT INFORMATION
  Report Type: 
  Country: None (occurrence: None)
  Receive Date: 20111030
  Receipt Date: 20110509
  Transmission Date: 20120403
  Serious: No
  Sender: FDA-Public Use
  Company Number: US-AMGEN-USASP2011024044

PATIENT
  Age: 57 Year
  Sex: Female

DRUGS (1)
  1. ENBREL [Suspect]
     Indication: RHEUMATOID ARTHRITIS
     Dosage: 50 MG, QWK
     Dates: start: 20100701

REACTIONS (6)
  - RASH PRURITIC [None]
  - RASH PAPULAR [None]
  - RHINORRHOEA [None]
  - NASOPHARYNGITIS [None]
  - INJECTION SITE HAEMATOMA [None]
  - SINUS CONGESTION [None]
